FAERS Safety Report 20893623 (Version 4)
Quarter: 2023Q1

REPORT INFORMATION
  Report Type: Spontaneous
  Country: US (occurrence: US)
  Receive Date: 20220531
  Receipt Date: 20230315
  Transmission Date: 20230417
  Serious: No
  Sender: FDA-Public Use
  Company Number: US-CELGENE-USA-20220302649

PATIENT
  Age: 60 Year
  Sex: Female

DRUGS (4)
  1. REVLIMID [Suspect]
     Active Substance: LENALIDOMIDE
     Indication: Plasma cell myeloma
     Dosage: 25 MILLIGRAM
     Route: 048
     Dates: start: 202006
  2. REVLIMID [Suspect]
     Active Substance: LENALIDOMIDE
     Route: 048
     Dates: start: 20210911, end: 202203
  3. REVLIMID [Suspect]
     Active Substance: LENALIDOMIDE
     Route: 048
     Dates: start: 202206
  4. REVLIMID [Suspect]
     Active Substance: LENALIDOMIDE
     Route: 048
     Dates: start: 20220113

REACTIONS (15)
  - Hyperhidrosis [Unknown]
  - Myalgia [Unknown]
  - Diarrhoea [Unknown]
  - Muscle spasms [Unknown]
  - Gastric disorder [Unknown]
  - Abdominal pain upper [Unknown]
  - Fatigue [Unknown]
  - Asthenia [Unknown]
  - Gastroenteritis viral [Unknown]
  - Dyspepsia [Unknown]
  - Pain [Unknown]
  - Hypertension [Unknown]
  - Anxiety [Unknown]
  - Abdominal pain [Unknown]
  - Abdominal discomfort [Unknown]
